FAERS Safety Report 19673136 (Version 1)
Quarter: 2021Q3

REPORT INFORMATION
  Report Type: Spontaneous
  Country: US (occurrence: US)
  Receive Date: 20210809
  Receipt Date: 20210809
  Transmission Date: 20211014
  Serious: Yes (Other)
  Sender: FDA-Public Use
  Company Number: US-ACCORD-152313

PATIENT
  Age: 52 Year
  Sex: Female
  Weight: 72.57 kg

DRUGS (10)
  1. ZOFRAN [Concomitant]
     Active Substance: ONDANSETRON HYDROCHLORIDE
     Dates: start: 20111010, end: 20111212
  2. LORTAB [Concomitant]
     Active Substance: ACETAMINOPHEN\HYDROCODONE BITARTRATE
     Dates: start: 20111010, end: 20111212
  3. CLONAZEPAM. [Concomitant]
     Active Substance: CLONAZEPAM
  4. MOBIC [Concomitant]
     Active Substance: MELOXICAM
  5. CYTOXAN [Suspect]
     Active Substance: CYCLOPHOSPHAMIDE
     Indication: BREAST CANCER
     Dates: start: 20111010, end: 20111212
  6. KEFLEX [Concomitant]
     Active Substance: CEPHALEXIN
  7. ROBAXIN [Concomitant]
     Active Substance: METHOCARBAMOL
     Dates: end: 2014
  8. ZOCOR [Concomitant]
     Active Substance: SIMVASTATIN
  9. WELLBUTRIN [Concomitant]
     Active Substance: BUPROPION HYDROCHLORIDE
  10. DOCETAXEL ACCORD [Suspect]
     Active Substance: DOCETAXEL
     Indication: BREAST CANCER
     Dosage: DOSE: 135M/1100M?EVERY THREE WEEKS
     Dates: start: 20111010, end: 20111212

REACTIONS (1)
  - Alopecia [Not Recovered/Not Resolved]

NARRATIVE: CASE EVENT DATE: 20111031
